FAERS Safety Report 7197394-3 (Version None)
Quarter: 2010Q4

REPORT INFORMATION
  Report Type: 
  Country: None (occurrence: None)
  Receive Date: 20101206
  Receipt Date: 20101124
  Transmission Date: 20110411
  Serious: Yes (Other)
  Sender: FDA-Public Use
  Company Number: 2010SP062389

PATIENT
  Sex: Female

DRUGS (3)
  1. MIRALAX [Suspect]
     Indication: PRODUCT USED FOR UNKNOWN INDICATION
     Dosage: 17 GM;ONCE;PO
     Route: 048
     Dates: start: 20101101
  2. PAIN KILLERS [Concomitant]
  3. ANTIBIOTICS [Concomitant]

REACTIONS (1)
  - ANAL HAEMORRHAGE [None]
